FAERS Safety Report 6651388-2 (Version None)
Quarter: 2010Q1

REPORT INFORMATION
  Report Type: 
  Country: None (occurrence: None)
  Receive Date: 20100325
  Receipt Date: 20100323
  Transmission Date: 20100710
  Serious: Yes (Other)
  Sender: FDA-Public Use
  Company Number: EG-ROCHE-680313

PATIENT
  Sex: Male

DRUGS (3)
  1. TAMIFLU [Suspect]
     Indication: H1N1 INFLUENZA
     Route: 048
     Dates: start: 20100108, end: 20100113
  2. BRONCHODILATORS [Concomitant]
     Indication: ASTHMA
     Route: 055
     Dates: start: 20081201
  3. ACETAMINOPHEN [Concomitant]
     Dates: start: 20100108, end: 20100113

REACTIONS (1)
  - HYPOTHERMIA [None]
